FAERS Safety Report 4547266-5 (Version None)
Quarter: 2005Q1

REPORT INFORMATION
  Report Type: 
  Country: None (occurrence: None)
  Receive Date: 20050105
  Receipt Date: 20041217
  Transmission Date: 20050727
  Serious: Yes (Hospitalization)
  Sender: FDA-Public Use
  Company Number: USA041184605

PATIENT
  Age: 66 Year
  Sex: Female
  Weight: 29 kg

DRUGS (2)
  1. FORTEO [Suspect]
     Indication: OSTEOPOROSIS
     Dosage: 20 UG/1 DAY
     Dates: start: 20041028, end: 20041030
  2. BACLOFEN [Concomitant]

REACTIONS (2)
  - KIDNEY INFECTION [None]
  - PHARMACEUTICAL PRODUCT COMPLAINT [None]
